FAERS Safety Report 11327226 (Version 1)
Quarter: 2015Q3

REPORT INFORMATION
  Report Type: Report from Study
  Country: JP (occurrence: JP)
  Receive Date: 20150731
  Receipt Date: 20150731
  Transmission Date: 20151125
  Serious: Yes (Hospitalization)
  Sender: FDA-Public Use
  Company Number: JP-UCBSA-2015007287

PATIENT
  Age: 63 Year
  Sex: Female
  Weight: 42 kg

DRUGS (9)
  1. MAINTATE [Concomitant]
     Active Substance: BISOPROLOL FUMARATE
     Indication: SINUS TACHYCARDIA
     Dosage: UNK
     Dates: start: 20150122
  2. ROTIGOTINE [Suspect]
     Active Substance: ROTIGOTINE
     Dosage: 4 MG AS DAILY DOSE (CONVERTED FROM 9 MG)
     Route: 062
     Dates: start: 20140501, end: 20150204
  3. DOMPERIDONE [Concomitant]
     Active Substance: DOMPERIDONE
     Indication: PRODUCT USED FOR UNKNOWN INDICATION
     Dosage: 30 MG AS DAILY DOSE
     Dates: start: 20141125
  4. HEPARINOID [Concomitant]
     Active Substance: CHONDROITIN SULFATE (BOVINE)
     Indication: PRODUCT USED FOR UNKNOWN INDICATION
     Dosage: UNK
     Dates: start: 201404
  5. CARBOCISTEINE [Concomitant]
     Active Substance: CARBOCYSTEINE
     Indication: PRODUCT USED FOR UNKNOWN INDICATION
     Dosage: 1500 MG AS DAILY DOSE
     Dates: start: 20141113, end: 20141125
  6. ROTIGOTINE [Suspect]
     Active Substance: ROTIGOTINE
     Dosage: 2 MG AS DAILY DOSE (CONVERTED FROM 4.5 MG)
     Route: 062
     Dates: start: 20150305
  7. STALEVO [Concomitant]
     Active Substance: CARBIDOPA\ENTACAPONE\LEVODOPA
     Indication: PARKINSON^S DISEASE
     Dosage: 100 MG
     Dates: start: 20150430
  8. NINJINTO [Concomitant]
     Indication: PRODUCT USED FOR UNKNOWN INDICATION
     Dosage: 5 G AS DAILY DOSE
     Dates: start: 20150106, end: 20150305
  9. ROTIGOTINE [Suspect]
     Active Substance: ROTIGOTINE
     Indication: PARKINSON^S DISEASE
     Dosage: 2 MG AS DAILY DOSE (CONVERTED FROM 4.5 MG)
     Route: 062
     Dates: start: 20140403, end: 20140430

REACTIONS (4)
  - Herpes zoster [Recovered/Resolved]
  - Depression [Not Recovered/Not Resolved]
  - Application site dermatitis [Recovered/Resolved]
  - Sinus tachycardia [Recovering/Resolving]

NARRATIVE: CASE EVENT DATE: 20140913
